FAERS Safety Report 9010461 (Version 1)
Quarter: 2013Q1

REPORT INFORMATION
  Report Type: Spontaneous
  Country: US (occurrence: US)
  Receive Date: 20130109
  Receipt Date: 20130109
  Transmission Date: 20140127
  Serious: Yes (Other)
  Sender: FDA-Public Use
  Company Number: US-009507513-0909USA03297

PATIENT
  Age: 5 Year
  Sex: Female
  Weight: 17.69 kg

DRUGS (2)
  1. SINGULAIR [Suspect]
     Indication: MULTIPLE ALLERGIES
     Dosage: 4 MG, HS
     Route: 048
     Dates: start: 20060901
  2. SINGULAIR [Suspect]
     Indication: ASTHMA
     Dosage: 2 MG, HS
     Route: 048
     Dates: start: 200812, end: 20090107

REACTIONS (10)
  - Crying [Recovered/Resolved]
  - Dyspnoea [Recovered/Resolved]
  - Hyperhidrosis [Recovered/Resolved]
  - Insomnia [Recovered/Resolved]
  - Oropharyngeal pain [Recovered/Resolved]
  - Pain in extremity [Recovered/Resolved]
  - Sinusitis [Recovered/Resolved]
  - Sleep disorder [Recovered/Resolved]
  - Drug ineffective [Unknown]
  - Depressed mood [Recovered/Resolved]
